FAERS Safety Report 8328290-3 (Version None)
Quarter: 2012Q2

REPORT INFORMATION
  Report Type: 
  Country: None (occurrence: None)
  Receive Date: 20120424
  Receipt Date: 20120411
  Transmission Date: 20120825
  Serious: Yes (Death)
  Sender: FDA-Public Use
  Company Number: 25766

PATIENT
  Sex: Male
  Weight: 72.5755 kg

DRUGS (1)
  1. GLASSIA [Suspect]
     Dosage: IV
     Route: 042

REACTIONS (1)
  - LUNG NEOPLASM MALIGNANT [None]
